FAERS Safety Report 6686041-2 (Version None)
Quarter: 2010Q2

REPORT INFORMATION
  Report Type: 
  Country: None (occurrence: None)
  Receive Date: 20100419
  Receipt Date: 20100322
  Transmission Date: 20101027
  Serious: No
  Sender: FDA-Public Use
  Company Number: US-ELI_LILLY_AND_COMPANY-US201003006005

PATIENT
  Sex: Male

DRUGS (4)
  1. CIALIS [Suspect]
     Indication: ERECTILE DYSFUNCTION
     Dosage: 10 MG, AS NEEDED
  2. CIALIS [Suspect]
     Dosage: 2.5 MG, DAILY (1/D)
     Dates: start: 20100318
  3. TESTOSTERONE [Concomitant]
     Indication: ERECTILE DYSFUNCTION
     Route: 061
  4. CHOLESTEROL- AND TRIGLYCERIDE REDUCERS [Concomitant]

REACTIONS (3)
  - HEADACHE [None]
  - INTENTIONAL DRUG MISUSE [None]
  - VISION BLURRED [None]
